FAERS Safety Report 4821350-0 (Version None)
Quarter: 2005Q4

REPORT INFORMATION
  Report Type: 
  Country: None (occurrence: None)
  Receive Date: 20051107
  Receipt Date: 20050926
  Transmission Date: 20060501
  Serious: No
  Sender: FDA-Public Use
  Company Number: US-GLAXOSMITHKLINE-A0575926A

PATIENT
  Sex: Male

DRUGS (8)
  1. AVANDAMET [Suspect]
     Route: 048
  2. PREDNISONE [Concomitant]
  3. PROGRAF [Concomitant]
  4. CELLCEPT [Concomitant]
  5. PROCARDIA XL [Concomitant]
  6. ATACAND [Concomitant]
  7. ZOLOFT [Concomitant]
  8. XANAX [Concomitant]

REACTIONS (1)
  - WEIGHT INCREASED [None]
